FAERS Safety Report 9265034 (Version 1)
Quarter: 2013Q2

REPORT INFORMATION
  Report Type: Other
  Country: FR (occurrence: FR)
  Receive Date: 20130501
  Receipt Date: 20130501
  Transmission Date: 20140414
  Serious: Yes (Other)
  Sender: FDA-Public Use
  Company Number: FR-MILLENNIUM PHARMACEUTICALS, INC.-2013-03115

PATIENT
  Sex: 0

DRUGS (12)
  1. VELCADE [Suspect]
     Indication: PLASMA CELL MYELOMA
     Dosage: UNK
     Route: 065
     Dates: start: 20110609, end: 20111027
  2. VELCADE [Suspect]
     Dosage: 1 MG/M2, UNK
     Route: 065
     Dates: start: 201111
  3. VELCADE [Suspect]
     Dosage: UNK
     Route: 058
     Dates: start: 201112, end: 20120319
  4. DEXAMETHASONE [Concomitant]
     Indication: PLASMA CELL MYELOMA
     Dosage: UNK
     Dates: start: 20110609, end: 20111027
  5. TEMERIT                            /01339101/ [Concomitant]
     Dosage: 5 MG, UNK
  6. KARDEGIC                           /00002703/ [Concomitant]
     Dosage: 75 MG, UNK
  7. KAYEXALATE [Concomitant]
  8. UVEDOSE [Concomitant]
  9. AMLOR [Concomitant]
     Dosage: 5 MG, UNK
  10. IMOVANE [Concomitant]
  11. ZOCOR [Concomitant]
     Dosage: 20 MG, UNK
  12. OMEPRAZOLE [Concomitant]
     Dosage: 40 MG, UNK

REACTIONS (2)
  - Neuropathy peripheral [Recovering/Resolving]
  - Tremor [Recovered/Resolved]
